FAERS Safety Report 6630275-X (Version None)
Quarter: 2010Q1

REPORT INFORMATION
  Report Type: 
  Country: None (occurrence: None)
  Receive Date: 20100311
  Receipt Date: 20100304
  Transmission Date: 20100710
  Serious: Yes (Disabling)
  Sender: FDA-Public Use
  Company Number: B0639096A

PATIENT
  Sex: Female
  Weight: 59 kg

DRUGS (3)
  1. AUGMENTIN '125' [Suspect]
     Indication: TOOTH EXTRACTION
     Dosage: 1UNIT TWICE PER DAY
     Route: 048
     Dates: start: 20100115, end: 20100118
  2. HARMONET [Concomitant]
     Indication: CONTRACEPTION
     Dosage: 1UNIT PER DAY
     Route: 048
     Dates: start: 19990101, end: 20091201
  3. FOLIC ACID [Concomitant]
     Indication: PREGNANCY
     Route: 048
     Dates: start: 20100101, end: 20100118

REACTIONS (6)
  - ABDOMINAL PAIN UPPER [None]
  - ABNORMAL FAECES [None]
  - ALANINE AMINOTRANSFERASE INCREASED [None]
  - ASPARTATE AMINOTRANSFERASE INCREASED [None]
  - GAMMA-GLUTAMYLTRANSFERASE INCREASED [None]
  - HYPOTENSION [None]
